FAERS Safety Report 5608932-3 (Version None)
Quarter: 2008Q1

REPORT INFORMATION
  Report Type: 
  Country: None (occurrence: None)
  Receive Date: 20080129
  Receipt Date: 20080129
  Transmission Date: 20080703
  Serious: Yes (Other)
  Sender: FDA-Public Use
  Company Number: None

PATIENT
  Age: 39 Year
  Sex: Female
  Weight: 102.0593 kg

DRUGS (1)
  1. LYRICA [Suspect]
     Indication: FIBROMYALGIA
     Dosage: 1 TWICE DAILY PO
     Route: 048
     Dates: start: 20080113, end: 20080126

REACTIONS (5)
  - BLOOD PRESSURE INCREASED [None]
  - DISORIENTATION [None]
  - HEADACHE [None]
  - HEART RATE IRREGULAR [None]
  - REACTION TO DRUG EXCIPIENTS [None]
